FAERS Safety Report 9288815 (Version 1)
Quarter: 2013Q2

REPORT INFORMATION
  Report Type: Spontaneous
  Country: US (occurrence: None)
  Receive Date: 20130509
  Receipt Date: 20130509
  Transmission Date: 20140414
  Serious: Yes (Other)
  Sender: FDA-Public Use
  Company Number: 1702384

PATIENT
  Age: 69 Year
  Sex: Female

DRUGS (3)
  1. DOCETAXEL [Suspect]
     Indication: CHEMOTHERAPY
  2. (CYCLOPHOSPHAMIDE) [Suspect]
     Indication: CHEMOTHERAPY
  3. (INVESTIGATIONAL DRUG) [Suspect]

REACTIONS (1)
  - Neutropenic sepsis [None]
